FAERS Safety Report 14195804 (Version 3)
Quarter: 2018Q1

REPORT INFORMATION
  Report Type: Spontaneous
  Country: US (occurrence: US)
  Receive Date: 20171116
  Receipt Date: 20180205
  Transmission Date: 20180508
  Serious: Yes (Other)
  Sender: FDA-Public Use
  Company Number: PHEH2017US036923

PATIENT
  Sex: Female

DRUGS (1)
  1. GILENYA [Suspect]
     Active Substance: FINGOLIMOD HYDROCHLORIDE
     Indication: MULTIPLE SCLEROSIS
     Dosage: UNK
     Route: 065

REACTIONS (8)
  - Epilepsy [Unknown]
  - Depressed mood [Unknown]
  - Headache [Unknown]
  - Tooth erosion [Unknown]
  - Alopecia [Unknown]
  - Drug ineffective [Unknown]
  - Condition aggravated [Unknown]
  - Asthenia [Unknown]
